FAERS Safety Report 6954740-0 (Version None)
Quarter: 2010Q3

REPORT INFORMATION
  Report Type: 
  Country: None (occurrence: None)
  Receive Date: 20100830
  Receipt Date: 20100823
  Transmission Date: 20110219
  Serious: Yes (Hospitalization)
  Sender: FDA-Public Use
  Company Number: DE-BIOGENIDEC-2010BI025587

PATIENT
  Age: 31 Year
  Sex: Female
  Weight: 98 kg

DRUGS (7)
  1. TYSABRI [Suspect]
     Indication: MULTIPLE SCLEROSIS
     Route: 042
     Dates: start: 20080123, end: 20100427
  2. GLATIRAMER ACETATE [Concomitant]
     Indication: MULTIPLE SCLEROSIS
     Route: 058
     Dates: start: 20100607
  3. CARBAMAZEPINE [Concomitant]
     Indication: NEURALGIA
     Route: 048
     Dates: start: 20061101
  4. ESCITALOPRAME [Concomitant]
     Indication: FATIGUE
     Route: 048
     Dates: start: 20080401
  5. MODAFINIL [Concomitant]
     Indication: FATIGUE
     Route: 048
     Dates: start: 20080401
  6. MULTI-VITAMINS [Concomitant]
  7. BIRTH CONTROL (NOS) [Concomitant]

REACTIONS (1)
  - BENIGN INTRACRANIAL HYPERTENSION [None]
